FAERS Safety Report 10667994 (Version 2)
Quarter: 2014Q4

REPORT INFORMATION
  Report Type: Spontaneous
  Country: IT (occurrence: IT)
  Receive Date: 20141222
  Receipt Date: 20141222
  Transmission Date: 20150529
  Serious: Yes (Other)
  Sender: FDA-Public Use
  Company Number: IT-THROMBOGENICS NV-SPO-2014-0963

PATIENT
  Age: 69 Year
  Sex: Female

DRUGS (1)
  1. JETREA [Suspect]
     Active Substance: OCRIPLASMIN
     Indication: VITREOUS ADHESIONS
     Dosage: 0.125 MG, ONE TIME DOSE
     Route: 031
     Dates: start: 20140625, end: 20140625

REACTIONS (10)
  - Visual acuity reduced [Recovered/Resolved]
  - Subretinal fluid [Recovered/Resolved]
  - Chromatopsia [Recovered/Resolved]
  - Tunnel vision [Recovered/Resolved]
  - Retinal injury [Recovered/Resolved]
  - Visual impairment [Recovered/Resolved]
  - Photopsia [Recovered/Resolved]
  - Ophthalmological examination abnormal [Unknown]
  - Vision blurred [Unknown]
  - No therapeutic response [Unknown]

NARRATIVE: CASE EVENT DATE: 20140625
